FAERS Safety Report 9248676 (Version 2)
Quarter: 2013Q2

REPORT INFORMATION
  Report Type: Spontaneous
  Country: CA (occurrence: CA)
  Receive Date: 20130423
  Receipt Date: 20130424
  Transmission Date: 20140414
  Serious: Yes (Other)
  Sender: FDA-Public Use
  Company Number: CA-ROCHE-1212749

PATIENT
  Age: 52 Year
  Sex: Male

DRUGS (7)
  1. RITUXAN [Suspect]
     Indication: VASCULITIS
     Route: 042
     Dates: start: 20130325
  2. BACTRIM [Suspect]
     Indication: PRODUCT USED FOR UNKNOWN INDICATION
     Route: 065
     Dates: start: 2012, end: 20130408
  3. DIPHENHYDRAMINE HCL [Concomitant]
     Route: 042
     Dates: start: 20130325
  4. ACETAMINOPHEN [Concomitant]
     Route: 048
     Dates: start: 20130325
  5. PREDNISONE [Concomitant]
     Route: 048
     Dates: start: 20130325
  6. ASPIRIN [Concomitant]
  7. ARANESP [Concomitant]

REACTIONS (23)
  - Proteinuria [Not Recovered/Not Resolved]
  - Platelet count decreased [Not Recovered/Not Resolved]
  - Blood urea increased [Not Recovered/Not Resolved]
  - Blood creatinine increased [Not Recovered/Not Resolved]
  - Blood urine present [Not Recovered/Not Resolved]
  - Blood lactate dehydrogenase increased [Not Recovered/Not Resolved]
  - Red blood cell count decreased [Not Recovered/Not Resolved]
  - Mean platelet volume decreased [Not Recovered/Not Resolved]
  - Haemoglobin decreased [Not Recovered/Not Resolved]
  - Haematocrit decreased [Not Recovered/Not Resolved]
  - Red cell distribution width increased [Not Recovered/Not Resolved]
  - Lymphocyte count decreased [Not Recovered/Not Resolved]
  - Monocyte count increased [Not Recovered/Not Resolved]
  - Neutrophil count increased [Not Recovered/Not Resolved]
  - Reticulocyte count decreased [Not Recovered/Not Resolved]
  - Blood bilirubin decreased [Not Recovered/Not Resolved]
  - Blood alkaline phosphatase decreased [Not Recovered/Not Resolved]
  - Blood chloride increased [Not Recovered/Not Resolved]
  - Blood calcium decreased [Not Recovered/Not Resolved]
  - Protein total decreased [Not Recovered/Not Resolved]
  - Blood albumin decreased [Not Recovered/Not Resolved]
  - Vitamin B12 decreased [Not Recovered/Not Resolved]
  - Activated partial thromboplastin time shortened [Not Recovered/Not Resolved]
